FAERS Safety Report 18985768 (Version 3)
Quarter: 2021Q2

REPORT INFORMATION
  Report Type: Spontaneous
  Country: US (occurrence: US)
  Receive Date: 20210309
  Receipt Date: 20210412
  Transmission Date: 20210717
  Serious: Yes (Hospitalization, Other)
  Sender: FDA-Public Use
  Company Number: US-PFIZER INC-2021245201

PATIENT
  Age: 72 Year
  Sex: Female
  Weight: 43.09 kg

DRUGS (1)
  1. PREMARIN [Suspect]
     Active Substance: ESTROGENS, CONJUGATED
     Dosage: 10 MG, DAILY
     Dates: start: 2016

REACTIONS (2)
  - Off label use [Unknown]
  - Dementia Alzheimer^s type [Recovering/Resolving]
